FAERS Safety Report 8260458-7 (Version None)
Quarter: 2012Q2

REPORT INFORMATION
  Report Type: 
  Country: None (occurrence: None)
  Receive Date: 20120404
  Receipt Date: 20120327
  Transmission Date: 20120825
  Serious: Yes (Life-Threatening, Hospitalization, Disabling)
  Sender: FDA-Public Use
  Company Number: US-MERCK-1203USA03758

PATIENT
  Age: 67 Year
  Sex: Male
  Weight: 119 kg

DRUGS (3)
  1. MECLIZINE [Concomitant]
     Route: 065
  2. TOPIRAMATE [Concomitant]
     Route: 065
  3. JANUVIA [Suspect]
     Indication: DIABETES MELLITUS
     Route: 048
     Dates: start: 20111001

REACTIONS (4)
  - VITH NERVE PARALYSIS [None]
  - CEREBROVASCULAR ACCIDENT [None]
  - HYPERTENSION [None]
  - BLOOD GLUCOSE [None]
